FAERS Safety Report 6408084-6 (Version None)
Quarter: 2009Q4

REPORT INFORMATION
  Report Type: 
  Country: None (occurrence: None)
  Receive Date: 20091016
  Receipt Date: 20091002
  Transmission Date: 20100525
  Serious: Yes (Other)
  Sender: FDA-Public Use
  Company Number: MC200900364

PATIENT
  Age: 57 Year
  Sex: Male

DRUGS (2)
  1. CLEVIPREX [Suspect]
     Indication: BLOOD PRESSURE DECREASED
     Dosage: AROUND 1-3 MG/HR, INTRAVENOUS
     Route: 042
  2. CLEVIPREX [Suspect]
     Indication: POST PROCEDURAL COMPLICATION
     Dosage: AROUND 1-3 MG/HR, INTRAVENOUS
     Route: 042

REACTIONS (2)
  - OXYGEN SATURATION DECREASED [None]
  - RESPIRATORY GAS EXCHANGE DISORDER [None]
